FAERS Safety Report 9913602 (Version 1)
Quarter: 2014Q1

REPORT INFORMATION
  Report Type: Spontaneous
  Country: US (occurrence: None)
  Receive Date: 20140218
  Receipt Date: 20140218
  Transmission Date: 20141002
  Serious: Yes (Hospitalization)
  Sender: FDA-Public Use
  Company Number: None

PATIENT
  Age: 78 Year
  Sex: Male
  Weight: 81.8 kg

DRUGS (2)
  1. TACROLIMUS [Suspect]
     Indication: HEART TRANSPLANT
     Dosage: TAKE 3 TABLETS QAM AND 2 TABLETS BID PO
     Dates: end: 2005
  2. MYCOPHENOLATE [Suspect]
     Route: 048
     Dates: end: 2005

REACTIONS (2)
  - Clostridium difficile infection [None]
  - Guillain-Barre syndrome [None]
